FAERS Safety Report 22222361 (Version 1)
Quarter: 2023Q2

REPORT INFORMATION
  Report Type: Spontaneous
  Country: US (occurrence: None)
  Receive Date: 20230414
  Receipt Date: 20230414
  Transmission Date: 20230721
  Serious: No
  Sender: FDA-Public Use
  Company Number: None

PATIENT
  Age: 49 Year
  Sex: Female
  Weight: 107.95 kg

DRUGS (8)
  1. VERZENIO [Suspect]
     Active Substance: ABEMACICLIB
     Indication: Breast cancer female
     Dosage: FREQUENCY : TWICE A DAY;?
     Route: 048
     Dates: start: 202301
  2. ACETAMINOPHEN [Concomitant]
  3. CARVEDILOL [Concomitant]
  4. FASLODEX [Concomitant]
     Active Substance: FULVESTRANT
  5. FUROSEMIDE [Concomitant]
     Active Substance: FUROSEMIDE
  6. LEVOTHYROXINE [Concomitant]
  7. TAMOXIFEN [Concomitant]
  8. ZOLADEX [Concomitant]
     Active Substance: GOSERELIN ACETATE

REACTIONS (1)
  - Full blood count abnormal [None]
